FAERS Safety Report 6695237-5 (Version None)
Quarter: 2010Q2

REPORT INFORMATION
  Report Type: 
  Country: None (occurrence: None)
  Receive Date: 20100423
  Receipt Date: 20100409
  Transmission Date: 20101027
  Serious: Yes (Hospitalization)
  Sender: FDA-Public Use
  Company Number: US-ELI_LILLY_AND_COMPANY-US201004006356

PATIENT
  Sex: Female
  Weight: 81.633 kg

DRUGS (4)
  1. ADCIRCA [Suspect]
     Indication: PULMONARY HYPERTENSION
     Dosage: UNK, UNKNOWN
     Route: 048
  2. TREPROSTINIL [Concomitant]
     Indication: PULMONARY HYPERTENSION
     Dosage: 0.6 D/F, UNKNOWN
     Route: 055
     Dates: start: 20100321
  3. COUMADIN [Concomitant]
     Dosage: UNK, UNKNOWN
     Route: 048
  4. ASPIRIN [Concomitant]
     Dosage: 325 MG, UNKNOWN
     Route: 048

REACTIONS (5)
  - BODY TEMPERATURE DECREASED [None]
  - CHILLS [None]
  - EPISTAXIS [None]
  - PNEUMONIA [None]
  - URINARY TRACT INFECTION [None]
